FAERS Safety Report 16814224 (Version 1)
Quarter: 2019Q3

REPORT INFORMATION
  Report Type: Spontaneous
  Country: US (occurrence: US)
  Receive Date: 20190917
  Receipt Date: 20190917
  Transmission Date: 20191005
  Serious: No
  Sender: FDA-Public Use
  Company Number: US-ALLERGAN-1919696US

PATIENT
  Age: 63 Year
  Sex: Female
  Weight: 92.99 kg

DRUGS (3)
  1. SUCRALFATE - BP [Suspect]
     Active Substance: SUCRALFATE
     Indication: NAUSEA
     Dosage: 1 UP TO 2 (1 GRAM) TABLETS, TID
     Route: 048
  2. PHENERGAN [Concomitant]
     Active Substance: PROMETHAZINE HYDROCHLORIDE
     Indication: NAUSEA
     Dosage: UNK, TID
     Dates: start: 201903
  3. SUCRALFATE - BP [Suspect]
     Active Substance: SUCRALFATE
     Indication: GASTROINTESTINAL ULCER PERFORATION

REACTIONS (5)
  - Wrong technique in product usage process [Unknown]
  - Dysphagia [Not Recovered/Not Resolved]
  - Off label use [Unknown]
  - Choking [Unknown]
  - Product design issue [Unknown]

NARRATIVE: CASE EVENT DATE: 201905
